FAERS Safety Report 15669419 (Version 2)
Quarter: 2019Q4

REPORT INFORMATION
  Report Type: Spontaneous
  Country: GB (occurrence: GB)
  Receive Date: 20181129
  Receipt Date: 20191204
  Transmission Date: 20200122
  Serious: Yes (Death, Other)
  Sender: FDA-Public Use
  Company Number: GB-DENTSPLY-2018SCDP000516

PATIENT
  Age: 28 Year
  Sex: Female

DRUGS (2)
  1. XYLOCAINE [Suspect]
     Active Substance: LIDOCAINE HYDROCHLORIDE
     Indication: ULCER
     Dosage: OROMUCOSAL SPRAY SOLUTION
     Route: 065
  2. PRILOCAINE AND LIDOCAINE [Suspect]
     Active Substance: LIDOCAINE\PRILOCAINE
     Indication: ULCER
     Dosage: CREAM
     Route: 065

REACTIONS (3)
  - Product administration error [Fatal]
  - Toxicity to various agents [Fatal]
  - Death [Fatal]
